FAERS Safety Report 11719958 (Version 2)
Quarter: 2015Q4

REPORT INFORMATION
  Report Type: Spontaneous
  Country: IT (occurrence: IT)
  Receive Date: 20151110
  Receipt Date: 20151119
  Transmission Date: 20160304
  Serious: Yes (Hospitalization)
  Sender: FDA-Public Use
  Company Number: IT-ROCHE-1656653

PATIENT
  Age: 67 Year
  Sex: Male

DRUGS (1)
  1. ZELBORAF [Suspect]
     Active Substance: VEMURAFENIB
     Indication: METASTATIC MALIGNANT MELANOMA
     Dosage: ^240 MG BLISTER PACK (AL/AL)^ 56 TABLETS
     Route: 048
     Dates: start: 20140130, end: 20140212

REACTIONS (2)
  - Erythema [Recovered/Resolved]
  - Gingival oedema [Recovered/Resolved]

NARRATIVE: CASE EVENT DATE: 20140212
